FAERS Safety Report 6532058-8 (Version None)
Quarter: 2010Q1

REPORT INFORMATION
  Report Type: 
  Country: None (occurrence: None)
  Receive Date: 20100107
  Receipt Date: 20100107
  Transmission Date: 20100710
  Serious: Yes (Other)
  Sender: FDA-Public Use
  Company Number: None

PATIENT
  Age: 65 Year
  Sex: Female
  Weight: 56.246 kg

DRUGS (1)
  1. PRIMODONE 50 MG GLOBAL PHARM [Suspect]
     Indication: TREMOR
     Dosage: 50 MG DAY PO
     Route: 048
     Dates: start: 20091130, end: 20091224

REACTIONS (6)
  - ANXIETY [None]
  - DISTURBANCE IN ATTENTION [None]
  - EMOTIONAL DISTRESS [None]
  - FEELING ABNORMAL [None]
  - HOT FLUSH [None]
  - TREMOR [None]
